FAERS Safety Report 19447481 (Version 1)
Quarter: 2021Q2

REPORT INFORMATION
  Report Type: Spontaneous
  Country: US (occurrence: US)
  Receive Date: 20210621
  Receipt Date: 20210621
  Transmission Date: 20210717
  Serious: No
  Sender: FDA-Public Use
  Company Number: None

PATIENT
  Age: 34 Year
  Sex: Female

DRUGS (1)
  1. TECFIDERA [Suspect]
     Active Substance: DIMETHYL FUMARATE
     Route: 048
     Dates: start: 20210618, end: 20210618

REACTIONS (6)
  - Abdominal pain [None]
  - Dysphagia [None]
  - Ear pain [None]
  - Headache [None]
  - Dizziness [None]
  - Pharyngeal swelling [None]

NARRATIVE: CASE EVENT DATE: 20210618
